FAERS Safety Report 7392192-X (Version None)
Quarter: 2011Q2

REPORT INFORMATION
  Report Type: 
  Country: None (occurrence: None)
  Receive Date: 20110404
  Receipt Date: 20110328
  Transmission Date: 20111010
  Serious: Yes (Other)
  Sender: FDA-Public Use
  Company Number: B0709476A

PATIENT

DRUGS (9)
  1. PERGOLIDE [Concomitant]
     Indication: PARKINSON'S DISEASE
     Dates: start: 20000120
  2. MANTADIX [Concomitant]
     Indication: PARKINSON'S DISEASE
     Route: 065
     Dates: start: 20040101
  3. MODOPAR [Concomitant]
     Indication: PARKINSON'S DISEASE
     Route: 065
  4. SINEMET [Concomitant]
     Indication: PARKINSON'S DISEASE
     Route: 065
     Dates: start: 20040101
  5. DOPERGINE [Concomitant]
     Indication: PARKINSON'S DISEASE
     Route: 065
  6. COMTAN [Concomitant]
     Indication: PARKINSON'S DISEASE
     Route: 065
     Dates: start: 20040101
  7. CARBIDOPA AND LEVODOPA [Concomitant]
     Indication: PARKINSON'S DISEASE
     Route: 050
     Dates: start: 20060101
  8. TASMAR [Concomitant]
     Indication: PARKINSON'S DISEASE
     Route: 065
     Dates: start: 19980101
  9. REQUIP [Suspect]
     Indication: PARKINSON'S DISEASE
     Dosage: 3MG PER DAY
     Route: 065
     Dates: start: 19990119

REACTIONS (6)
  - FALL [None]
  - DYSKINESIA [None]
  - PARKINSONIAN GAIT [None]
  - HALLUCINATION [None]
  - BALANCE DISORDER [None]
  - FEELING COLD [None]
